FAERS Safety Report 8798460 (Version 1)
Quarter: 2012Q4

REPORT INFORMATION
  Report Type: 
  Country: US (occurrence: US)
  Receive Date: 20120920
  Receipt Date: 20120920
  Transmission Date: 20130627
  Serious: Yes (Hospitalization, Other)
  Sender: FDA-Public Use
  Company Number: US-ROCHE-784931

PATIENT
  Age: 26 None
  Sex: Male

DRUGS (2)
  1. ACCUTANE [Suspect]
     Indication: PRODUCT USED FOR UNKNOWN INDICATION
     Route: 065
     Dates: start: 1991, end: 1992
  2. ACCUTANE [Suspect]
     Dosage: 10 mg - 20 mg
     Route: 048
     Dates: start: 20010802, end: 200110

REACTIONS (5)
  - Small intestinal obstruction [Unknown]
  - Peritonitis [Unknown]
  - Inflammatory bowel disease [Unknown]
  - Colitis ulcerative [Unknown]
  - Depression [Unknown]
